FAERS Safety Report 10338203 (Version 1)
Quarter: 2014Q3

REPORT INFORMATION
  Report Type: Spontaneous
  Country: DE (occurrence: None)
  Receive Date: 20140722
  Receipt Date: 20140722
  Transmission Date: 20150326
  Serious: Yes (Hospitalization)
  Sender: FDA-Public Use
  Company Number: None

PATIENT
  Age: 48 Year
  Sex: Male
  Weight: 98.5 kg

DRUGS (8)
  1. PANTOZOL [Concomitant]
     Active Substance: PANTOPRAZOLE SODIUM
  2. DOCITON [Concomitant]
  3. HEPANERZ [Concomitant]
  4. RIBAVIRIN. [Suspect]
     Active Substance: RIBAVIRIN
     Indication: HEPATITIS C
     Dosage: 200 MG, 3-0-3, ORAL
     Route: 048
     Dates: start: 20140312
  5. SPIRONOLACTON [Concomitant]
     Active Substance: SPIRONOLACTONE
  6. LACTULOSE. [Concomitant]
     Active Substance: LACTULOSE
  7. FUROSEMID [Concomitant]
     Active Substance: FUROSEMIDE
  8. SOFOABURIR [Suspect]
     Active Substance: SOFOSBUVIR
     Indication: HEPATITIS C
     Dosage: 400 MG, 1-0-0, ORAL
     Route: 048
     Dates: start: 20140312

REACTIONS (1)
  - General physical health deterioration [None]

NARRATIVE: CASE EVENT DATE: 20140602
